FAERS Safety Report 14257250 (Version 1)
Quarter: 2017Q4

REPORT INFORMATION
  Report Type: Report from Study
  Country: BR (occurrence: BR)
  Receive Date: 20171206
  Receipt Date: 20171206
  Transmission Date: 20180321
  Serious: Yes (Other)
  Sender: FDA-Public Use
  Company Number: PHHY2017BR121091

PATIENT
  Sex: Male

DRUGS (3)
  1. EXELON PATCH [Suspect]
     Active Substance: RIVASTIGMINE
     Indication: DEMENTIA ALZHEIMER^S TYPE
     Dosage: 4.6 MG, QD PATCH 5 (CM2) (4 MONTHS AGO)
     Route: 062
     Dates: start: 20170811
  2. EXELON [Suspect]
     Active Substance: RIVASTIGMINE TARTRATE
     Indication: PRODUCT USED FOR UNKNOWN INDICATION
     Route: 048
  3. EXELON PATCH [Suspect]
     Active Substance: RIVASTIGMINE
     Dosage: 9.5 MG (PATCH 10 CM2), QD
     Route: 062

REACTIONS (8)
  - Dementia Alzheimer^s type [Unknown]
  - Swelling [Unknown]
  - Oral discomfort [Not Recovered/Not Resolved]
  - Irritability [Unknown]
  - Lack of application site rotation [Unknown]
  - Obsessive-compulsive disorder [Unknown]
  - Memory impairment [Unknown]
  - Condition aggravated [Unknown]
